FAERS Safety Report 17007445 (Version 1)
Quarter: 2019Q4

REPORT INFORMATION
  Report Type: Spontaneous
  Country: DE (occurrence: DE)
  Receive Date: 20191108
  Receipt Date: 20191108
  Transmission Date: 20200122
  Serious: Yes (Hospitalization)
  Sender: FDA-Public Use
  Company Number: DE-AMGEN-DEUSP2019180412

PATIENT
  Sex: Female

DRUGS (18)
  1. RITUXIMAB. [Suspect]
     Active Substance: RITUXIMAB
     Indication: B-CELL LYMPHOMA
     Dosage: 700 MILLIGRAM, QD (1 DAY)
     Route: 042
     Dates: start: 20180409, end: 20180409
  2. DOXORUBICINE [DOXORUBICIN] [Suspect]
     Active Substance: DOXORUBICIN
     Indication: B-CELL LYMPHOMA
     Dosage: 70 MILLIGRAM, QD (1 DAY)
     Route: 042
     Dates: start: 20180312, end: 20180312
  3. PANTOPRAZOLE [Concomitant]
     Active Substance: PANTOPRAZOLE
     Indication: PROPHYLAXIS
     Dosage: 40 MILLIGRAM, (0-0-1)
     Route: 048
  4. FUROSEMIDE. [Concomitant]
     Active Substance: FUROSEMIDE
     Indication: CARDIAC FAILURE
     Dosage: 40 MILLIGRAM, (1/4-1/4-0)
     Route: 048
  5. PEGFILGRASTIM [Suspect]
     Active Substance: PEGFILGRASTIM
     Indication: B-CELL LYMPHOMA
     Dosage: 6 MILLIGRAM, QD (1 DAY)
     Route: 058
     Dates: start: 20180315, end: 20180315
  6. NEBIVOLOL. [Concomitant]
     Active Substance: NEBIVOLOL
     Indication: HYPERTENSION
     Dosage: 5 MILLIGRAM, (1/2- 0- 1/2)
     Route: 048
  7. COLECALCIFEROL [Concomitant]
     Active Substance: CHOLECALCIFEROL
     Indication: HYPOKALAEMIA
     Dosage: 20000 INTERNATIONAL UNIT, QWK
     Route: 048
  8. BROMAZEPAM [Concomitant]
     Active Substance: BROMAZEPAM
     Indication: INSOMNIA
     Dosage: 6 MILLIGRAM, (0 -0-0-1/2)
     Route: 048
  9. FENTANYL. [Concomitant]
     Active Substance: FENTANYL
     Indication: ANALGESIC THERAPY
     Dosage: 50 MICROGRAM, (LAST CHANGE ON 26/JUL/2018 TO EVERY THREE DAYS)
     Route: 062
  10. MORPHINE [Concomitant]
     Active Substance: MORPHINE
     Indication: ANALGESIC THERAPY
     Dosage: 20 MILLIGRAM, AS NECESSARY (MAXIMUM 6X DAILY)
     Route: 048
  11. CYCLOPHOSPHAMIDE. [Suspect]
     Active Substance: CYCLOPHOSPHAMIDE
     Indication: B-CELL LYMPHOMA
     Dosage: 1050 MILLIGRAM, QD (1 DAY)
     Route: 042
     Dates: start: 20180312, end: 20180312
  12. PREDNISONE. [Suspect]
     Active Substance: PREDNISONE
     Indication: B-CELL LYMPHOMA
     Dosage: 100 MILLIGRAM, QD (5 DAYS)
     Route: 048
     Dates: start: 20180312, end: 20180316
  13. KALIUMCHLORIDE [Concomitant]
     Indication: DRUG THERAPY
     Dosage: 8 MILLIMOLE, (1-0-1)
     Route: 048
  14. CINNARIZINE;DIMENHYDRINATE [Concomitant]
     Indication: VERTIGO
     Dosage: UNK, (CINNARIZINE-20 MG; DIMENHYDRINATE-40 MG) (1-0-0)
     Route: 048
  15. MIRTAZAPINE. [Concomitant]
     Active Substance: MIRTAZAPINE
     Indication: INSOMNIA
     Dosage: 15 MILLIGRAM, (0-0-0-1/2)
     Route: 048
  16. VINCRISTINE [Suspect]
     Active Substance: VINCRISTINE
     Indication: B-CELL LYMPHOMA
     Dosage: 3.21 MILLIGRAM, QD (1 DAY)
     Route: 042
     Dates: start: 20180119, end: 20180119
  17. CALCIUM [Concomitant]
     Active Substance: CALCIUM
     Indication: DRUG THERAPY
     Dosage: 500 MILLIGRAM, QD
     Route: 048
  18. ENOXAPARIN SODIUM. [Concomitant]
     Active Substance: ENOXAPARIN SODIUM
     Indication: PROPHYLAXIS
     Dosage: 6000 INTERNATIONAL UNIT, (1-0-1)
     Route: 058

REACTIONS (2)
  - Refusal of treatment by patient [Unknown]
  - Decubitus ulcer [Not Recovered/Not Resolved]

NARRATIVE: CASE EVENT DATE: 2018
